FAERS Safety Report 21620632 (Version 6)
Quarter: 2023Q2

REPORT INFORMATION
  Report Type: Report from Study
  Country: US (occurrence: US)
  Receive Date: 20221121
  Receipt Date: 20230406
  Transmission Date: 20230721
  Serious: Yes (Hospitalization, Other)
  Sender: FDA-Public Use
  Company Number: US-002147023-NVSC2022US258810

PATIENT
  Age: 40 Year
  Sex: Male

DRUGS (5)
  1. ENTRESTO [Suspect]
     Active Substance: SACUBITRIL\VALSARTAN
     Indication: Cardiac failure
     Dosage: 24.26 MG, BID
     Route: 048
     Dates: start: 20220917
  2. ENTRESTO [Suspect]
     Active Substance: SACUBITRIL\VALSARTAN
     Dosage: 2 DOSAGE FORM, BID (24.26 MG, BID (24.26 MG TWO TABLETS TWICE A DAY)
     Route: 048
     Dates: start: 20220917
  3. LASIX [Concomitant]
     Active Substance: FUROSEMIDE
     Indication: Product used for unknown indication
     Dosage: UNK
     Route: 065
  4. CARVEDILOL [Concomitant]
     Active Substance: CARVEDILOL
     Indication: Product used for unknown indication
     Dosage: UNK, UNKNOWN
     Route: 048
     Dates: start: 2022, end: 202212
  5. UNSPECIFIED INGREDIENT [Concomitant]
     Active Substance: UNSPECIFIED INGREDIENT
     Indication: Product used for unknown indication
     Dosage: UNK
     Route: 065

REACTIONS (13)
  - Dehydration [Recovering/Resolving]
  - Asthma [Recovered/Resolved]
  - Cough [Recovered/Resolved]
  - Loss of consciousness [Unknown]
  - Chest pain [Unknown]
  - Fluid retention [Unknown]
  - Weight increased [Unknown]
  - Peripheral swelling [Unknown]
  - Hypotension [Unknown]
  - Gait disturbance [Not Recovered/Not Resolved]
  - Dyspnoea [Not Recovered/Not Resolved]
  - Fatigue [Not Recovered/Not Resolved]
  - Product dose omission in error [Unknown]

NARRATIVE: CASE EVENT DATE: 20220901
